FAERS Safety Report 16768181 (Version 3)
Quarter: 2020Q2

REPORT INFORMATION
  Report Type: Report from Study
  Country: DE (occurrence: DE)
  Receive Date: 20190903
  Receipt Date: 20200617
  Transmission Date: 20200713
  Serious: Yes (Hospitalization, Disabling, Other)
  Sender: FDA-Public Use
  Company Number: DE-BRISTOL-MYERS SQUIBB COMPANY-BMS-2019-083335

PATIENT
  Age: 70 Year
  Sex: Male

DRUGS (6)
  1. DIOVAN [Concomitant]
     Active Substance: VALSARTAN
     Indication: HYPERTENSION
     Dosage: 80 MILLIGRAM, QD
     Route: 048
  2. KEPPRA [Concomitant]
     Active Substance: LEVETIRACETAM
     Indication: PREMEDICATION
     Dosage: 1000 MILLIGRAM, BID
     Route: 065
  3. LEVETIRACETAM. [Concomitant]
     Active Substance: LEVETIRACETAM
     Indication: SEIZURE
     Dosage: 1500 MILLIGRAM, BID
     Route: 048
  4. BROMAZEPAM [Concomitant]
     Active Substance: BROMAZEPAM
     Indication: PREMEDICATION
     Dosage: 6 MILLIGRAM
     Route: 065
  5. NIVOLUMAB [Suspect]
     Active Substance: NIVOLUMAB
     Indication: MALIGNANT MELANOMA
     Dosage: 480 MILLIGRAM, Q4WK
     Route: 042
     Dates: start: 20170717, end: 20200303
  6. QUETIAPIN [Concomitant]
     Active Substance: QUETIAPINE
     Indication: SEIZURE
     Dosage: 50 MILLIGRAM, QHS
     Route: 048

REACTIONS (14)
  - Malignant neoplasm progression [Unknown]
  - Delirium [Unknown]
  - Musculoskeletal stiffness [Unknown]
  - Dehydration [Unknown]
  - Confusional state [Unknown]
  - General physical health deterioration [Unknown]
  - Gait disturbance [Unknown]
  - Dementia [Not Recovered/Not Resolved]
  - Fall [Unknown]
  - Mastication disorder [Unknown]
  - Asthenia [Unknown]
  - Encephalopathy [Recovering/Resolving]
  - Speech disorder [Unknown]
  - Hypovitaminosis [Unknown]

NARRATIVE: CASE EVENT DATE: 201908
